FAERS Safety Report 9517906 (Version 1)
Quarter: 2013Q3

REPORT INFORMATION
  Report Type: Report from Study
  Country: ZA (occurrence: ZA)
  Receive Date: 20130912
  Receipt Date: 20130912
  Transmission Date: 20140515
  Serious: Yes (Death)
  Sender: FDA-Public Use
  Company Number: ZA-ROCHE-1274068

PATIENT
  Sex: Male

DRUGS (11)
  1. MIRCERA [Suspect]
     Indication: NEPHROGENIC ANAEMIA
     Route: 058
     Dates: start: 20090731
  2. MIRCERA [Suspect]
     Route: 058
     Dates: start: 20100113
  3. MIRCERA [Suspect]
     Route: 058
     Dates: start: 20100315
  4. MIRCERA [Suspect]
     Route: 058
     Dates: start: 20100811
  5. MIRCERA [Suspect]
     Route: 058
     Dates: start: 20110202
  6. MIRCERA [Suspect]
     Route: 058
     Dates: start: 20110811
  7. MIRCERA [Suspect]
     Route: 058
     Dates: start: 20111201
  8. MIRCERA [Suspect]
     Route: 058
     Dates: start: 20120626
  9. MIRCERA [Suspect]
     Route: 058
     Dates: start: 20120918
  10. MIRCERA [Suspect]
     Route: 058
     Dates: start: 20130626
  11. RECORMON [Suspect]
     Indication: NEPHROGENIC ANAEMIA
     Route: 065
     Dates: start: 20120329

REACTIONS (1)
  - Death [Fatal]
